FAERS Safety Report 20162835 (Version 1)
Quarter: 2021Q4

REPORT INFORMATION
  Report Type: Spontaneous
  Country: FR (occurrence: FR)
  Receive Date: 20211209
  Receipt Date: 20211209
  Transmission Date: 20220303
  Serious: Yes (Disabling, Congenital Anomaly, Other)
  Sender: FDA-Public Use
  Company Number: FR-ABBVIE-21K-056-4189420-00

PATIENT

DRUGS (1)
  1. VALPROATE SODIUM [Suspect]
     Active Substance: VALPROATE SODIUM
     Indication: Product used for unknown indication
     Route: 064
     Dates: start: 200209, end: 20030628

REACTIONS (10)
  - Congenital flat feet [Recovered/Resolved with Sequelae]
  - Foetal exposure during pregnancy [Unknown]
  - Refraction disorder [Recovered/Resolved with Sequelae]
  - Strabismus congenital [Not Recovered/Not Resolved]
  - Scoliosis [Recovered/Resolved with Sequelae]
  - Autism spectrum disorder [Recovered/Resolved with Sequelae]
  - Dysmorphism [Recovered/Resolved with Sequelae]
  - Intellectual disability [Recovered/Resolved with Sequelae]
  - External hydrocephalus [Not Recovered/Not Resolved]
  - Skull malformation [Recovered/Resolved with Sequelae]

NARRATIVE: CASE EVENT DATE: 20210628
